FAERS Safety Report 13958776 (Version 6)
Quarter: 2019Q1

REPORT INFORMATION
  Report Type: Spontaneous
  Country: US (occurrence: US)
  Receive Date: 20170912
  Receipt Date: 20190315
  Transmission Date: 20190417
  Serious: Yes (Other)
  Sender: FDA-Public Use
  Company Number: US-BRISTOL-MYERS SQUIBB COMPANY-BMS-2017-081621

PATIENT
  Age: 60 Year
  Sex: Male

DRUGS (2)
  1. SPRYCEL [Suspect]
     Active Substance: DASATINIB
     Indication: LEUKAEMIA
     Route: 065
  2. SPRYCEL [Suspect]
     Active Substance: DASATINIB
     Indication: MYELOPROLIFERATIVE NEOPLASM
     Dosage: 140 MG, QD
     Route: 048
     Dates: start: 20171215, end: 20190205

REACTIONS (8)
  - Product use in unapproved indication [Unknown]
  - Pulmonary oedema [Unknown]
  - Nausea [Unknown]
  - Insomnia [Recovering/Resolving]
  - Pericardial effusion [Unknown]
  - Headache [Unknown]
  - Dyspnoea [Unknown]
  - Anxiety [Recovering/Resolving]

NARRATIVE: CASE EVENT DATE: 201811
